FAERS Safety Report 8888592 (Version 9)
Quarter: 2014Q2

REPORT INFORMATION
  Report Type: Spontaneous
  Country: US (occurrence: US)
  Receive Date: 20121106
  Receipt Date: 20140527
  Transmission Date: 20141212
  Serious: Yes (Other)
  Sender: FDA-Public Use
  Company Number: US-PFIZER INC-2012273810

PATIENT
  Age: 63 Year
  Sex: Female

DRUGS (7)
  1. INLYTA [Suspect]
     Indication: METASTATIC RENAL CELL CARCINOMA
     Dosage: 5 MG, 2X/DAY
     Dates: start: 20120614
  2. INLYTA [Suspect]
     Dosage: 5 MG, 2X/DAY
     Dates: start: 201207
  3. INLYTA [Suspect]
     Dosage: 5 MG, 2X/DAY
     Route: 048
     Dates: start: 20130510, end: 20131016
  4. AMLODIPINE [Concomitant]
     Dosage: UNK
     Dates: start: 2010
  5. AVALIDE [Concomitant]
     Dosage: UNK
     Dates: start: 2010
  6. PERCOCET [Concomitant]
     Dosage: UNK
     Dates: start: 2010
  7. L-THYROXIN [Concomitant]
     Dosage: UNK
     Dates: start: 2010

REACTIONS (7)
  - Cellulitis [Recovering/Resolving]
  - Pain in extremity [Unknown]
  - Peripheral swelling [Unknown]
  - Blood pressure increased [Recovering/Resolving]
  - Stomatitis [Unknown]
  - Rash macular [Unknown]
  - Thyroid disorder [Unknown]
